FAERS Safety Report 24624734 (Version 1)
Quarter: 2024Q4

REPORT INFORMATION
  Report Type: Spontaneous
  Country: CN (occurrence: CN)
  Receive Date: 20241115
  Receipt Date: 20241115
  Transmission Date: 20250115
  Serious: Yes (Hospitalization, Other)
  Sender: BAYER HEALTHCARE PHARMACEUTICALS INC.
  Company Number: CN-BAYER-2024A163248

PATIENT
  Age: 78 Year
  Sex: Female
  Weight: 30 kg

DRUGS (1)
  1. AVELOX [Suspect]
     Active Substance: MOXIFLOXACIN HYDROCHLORIDE
     Indication: Bacterial infection
     Dosage: 0.4 G, QD
     Route: 048
     Dates: start: 20241023, end: 20241029

REACTIONS (6)
  - Drug-induced liver injury [Recovering/Resolving]
  - Abdominal distension [Recovering/Resolving]
  - Yellow skin [Recovering/Resolving]
  - Nausea [Recovering/Resolving]
  - Decreased appetite [Recovering/Resolving]
  - Temperature intolerance [Recovering/Resolving]

NARRATIVE: CASE EVENT DATE: 20241024
